FAERS Safety Report 14216246 (Version 1)
Quarter: 2017Q4

REPORT INFORMATION
  Report Type: Report from Study
  Country: US (occurrence: US)
  Receive Date: 20171122
  Receipt Date: 20171122
  Transmission Date: 20180321
  Serious: Yes (Other)
  Sender: FDA-Public Use
  Company Number: US-BAYER-2017-160688

PATIENT
  Sex: Female
  Weight: 95.92 kg

DRUGS (3)
  1. ADEMPAS [Suspect]
     Active Substance: RIOCIGUAT
     Indication: PULMONARY ARTERIAL HYPERTENSION
     Dosage: 2.5 MG, TID
     Route: 048
  2. ADEMPAS [Suspect]
     Active Substance: RIOCIGUAT
     Indication: PULMONARY ARTERIAL HYPERTENSION
     Dosage: 2.5 MG, TID
     Route: 048
  3. ADEMPAS [Suspect]
     Active Substance: RIOCIGUAT
     Indication: PULMONARY ARTERIAL HYPERTENSION
     Dosage: UNK
     Dates: start: 20151019

REACTIONS (8)
  - Vitreous detachment [Unknown]
  - Hypotension [Recovered/Resolved]
  - Nausea [None]
  - Increased tendency to bruise [Unknown]
  - Lethargy [Unknown]
  - Headache [None]
  - Vitreous floaters [None]
  - Dizziness [None]

NARRATIVE: CASE EVENT DATE: 2017
